FAERS Safety Report 4842826-6 (Version None)
Quarter: 2005Q4

REPORT INFORMATION
  Report Type: 
  Country: None (occurrence: None)
  Receive Date: 20051130
  Receipt Date: 20051117
  Transmission Date: 20060501
  Serious: Yes (Disabling, Other)
  Sender: FDA-Public Use
  Company Number: 2005157847

PATIENT
  Sex: Female
  Weight: 90.2658 kg

DRUGS (16)
  1. NEURONTIN [Suspect]
     Indication: NEUROPATHY
     Dosage: 1600 MG 9800 MG, 2 IN 1 D), ORAL
     Route: 048
     Dates: start: 20030101, end: 20050101
  2. GABAPENTIN [Suspect]
     Indication: NEUROPATHY
     Dosage: 1600 MG (800 MG, 2 IN 1 D), ORAL
     Route: 048
  3. GABAPENTIN (GABEPENTIN) [Suspect]
     Indication: NEUROPATHY
     Dosage: 1600 MG (800 MG, 2 IN 1 D), ORAL
     Route: 048
     Dates: start: 20050101
  4. DARVOCET-N 100 [Concomitant]
  5. TOPROL-XL [Concomitant]
  6. ACCUPRIL [Concomitant]
  7. NORVASC [Concomitant]
  8. ECOTRIN (ACETYLSALICYLIC ACID) [Concomitant]
  9. HYDROCHLOROTHIAZIDE [Concomitant]
  10. NITROLINGUAL (GLYCERYL TRINITRATE) [Concomitant]
  11. IMITREX [Concomitant]
  12. XANAX [Concomitant]
  13. HUMULIN 70/30 [Concomitant]
  14. HUMULIN R [Concomitant]
  15. POTASSIUM (POTASSIUM) [Concomitant]
  16. DEMEROL [Concomitant]

REACTIONS (5)
  - CEREBROVASCULAR ACCIDENT [None]
  - DRUG INEFFECTIVE [None]
  - HEMIANOPIA [None]
  - OPTIC NERVE DISORDER [None]
  - PHARMACEUTICAL PRODUCT COMPLAINT [None]
